FAERS Safety Report 15671613 (Version 2)
Quarter: 2019Q1

REPORT INFORMATION
  Report Type: Report from Study
  Country: US (occurrence: US)
  Receive Date: 20181129
  Receipt Date: 20190109
  Transmission Date: 20190417
  Serious: Yes (Other)
  Sender: FDA-Public Use
  Company Number: US-TESARO-US-2018TSO04052

PATIENT
  Age: 82 Year
  Sex: Female
  Weight: 62 kg

DRUGS (5)
  1. ZEJULA [Suspect]
     Active Substance: NIRAPARIB
     Indication: OVARIAN CANCER
     Dosage: 200 MG, QD
     Route: 048
     Dates: start: 20180801, end: 2018
  2. ZEJULA [Suspect]
     Active Substance: NIRAPARIB
     Dosage: 200 MG, QD (QPM WITHOUT FOOD).
     Route: 048
  3. ONDANSETRON [Concomitant]
     Active Substance: ONDANSETRON
     Indication: VOMITING
  4. ONDANSETRON [Concomitant]
     Active Substance: ONDANSETRON
     Indication: NAUSEA
     Dosage: 8 MG, EVERY 6 HOURS AS NEEDED
     Route: 048
  5. EXEMESTANE. [Concomitant]
     Active Substance: EXEMESTANE
     Indication: PRODUCT USED FOR UNKNOWN INDICATION
     Dosage: 25 MG, QD

REACTIONS (10)
  - Laboratory test abnormal [Recovering/Resolving]
  - Nervousness [Unknown]
  - Intentional underdose [Not Recovered/Not Resolved]
  - Drug ineffective [Unknown]
  - Platelet count increased [Unknown]
  - Platelet count decreased [Recovered/Resolved]
  - Cytopenia [Unknown]
  - Dizziness [Unknown]
  - Malaise [Recovered/Resolved]
  - Heart rate increased [Unknown]

NARRATIVE: CASE EVENT DATE: 2018
